FAERS Safety Report 24880172 (Version 2)
Quarter: 2025Q2

REPORT INFORMATION
  Report Type: Report from Study
  Country: US (occurrence: US)
  Receive Date: 20250123
  Receipt Date: 20250416
  Transmission Date: 20250716
  Serious: Yes (Other)
  Sender: ABBVIE
  Company Number: US-ABBVIE-6097112

PATIENT
  Age: 64 Year
  Sex: Female

DRUGS (3)
  1. ELAHERE [Suspect]
     Active Substance: MIRVETUXIMAB SORAVTANSINE-GYNX
     Indication: Ovarian cancer
     Route: 042
  2. ELAHERE [Suspect]
     Active Substance: MIRVETUXIMAB SORAVTANSINE-GYNX
     Indication: Ovarian cancer
     Route: 042
  3. BENADRYL [Suspect]
     Active Substance: DIPHENHYDRAMINE HYDROCHLORIDE
     Indication: Pain
     Route: 065

REACTIONS (8)
  - Cataract [Recovering/Resolving]
  - Ocular toxicity [Recovering/Resolving]
  - Neuropathy peripheral [Not Recovered/Not Resolved]
  - Dizziness [Unknown]
  - Weight increased [Unknown]
  - Pain [Unknown]
  - Diarrhoea [Unknown]
  - Constipation [Unknown]

NARRATIVE: CASE EVENT DATE: 20240101
